FAERS Safety Report 24834811 (Version 1)
Quarter: 2025Q1

REPORT INFORMATION
  Report Type: Spontaneous
  Country: US (occurrence: None)
  Receive Date: 20250111
  Receipt Date: 20250111
  Transmission Date: 20250409
  Serious: Yes (Other)
  Sender: FDA-CTU
  Company Number: None

PATIENT
  Sex: Female

DRUGS (7)
  1. SIMPONI [Suspect]
     Active Substance: GOLIMUMAB
     Indication: Crohn^s disease
     Dosage: FREQUENCY : MONTHLY;?
     Route: 058
     Dates: start: 20210223
  2. ENOXAPARIN INJ 40/0.4ML [Concomitant]
  3. LISINOPRIL [Concomitant]
     Active Substance: LISINOPRIL
  4. METHOTREXATE [Concomitant]
     Active Substance: METHOTREXATE
  5. METOCLOPRAM TAB 10MG [Concomitant]
  6. OXYCODONE [Concomitant]
     Active Substance: OXYCODONE
  7. SIMPONI INJ 100MG/ML [Concomitant]

REACTIONS (2)
  - Surgery [None]
  - Therapy interrupted [None]
